FAERS Safety Report 20146409 (Version 1)
Quarter: 2021Q4

REPORT INFORMATION
  Report Type: Spontaneous
  Country: CA (occurrence: CA)
  Receive Date: 20211203
  Receipt Date: 20211203
  Transmission Date: 20220303
  Serious: Yes (Hospitalization)
  Sender: FDA-Public Use
  Company Number: CA-ABBVIE-21K-028-4184085-00

PATIENT
  Age: 61 Year
  Sex: Male

DRUGS (24)
  1. VALPROATE SODIUM [Suspect]
     Active Substance: VALPROATE SODIUM
     Indication: Epilepsy
     Route: 065
  2. ATROVENT [Suspect]
     Active Substance: IPRATROPIUM BROMIDE
     Indication: Product used for unknown indication
     Route: 065
  3. AMLODIPINE BESYLATE [Suspect]
     Active Substance: AMLODIPINE BESYLATE
     Indication: Product used for unknown indication
     Route: 065
  4. BUDESONIDE\FORMOTEROL FUMARATE [Suspect]
     Active Substance: BUDESONIDE\FORMOTEROL FUMARATE
     Indication: Product used for unknown indication
     Route: 065
  5. BUDESONIDE\FORMOTEROL FUMARATE [Suspect]
     Active Substance: BUDESONIDE\FORMOTEROL FUMARATE
     Route: 065
  6. CARBAMAZEPINE [Suspect]
     Active Substance: CARBAMAZEPINE
     Indication: Product used for unknown indication
     Route: 065
  7. CLONAZEPAM [Suspect]
     Active Substance: CLONAZEPAM
     Indication: Product used for unknown indication
     Route: 065
  8. DOXAZOSIN MESYLATE [Suspect]
     Active Substance: DOXAZOSIN MESYLATE
     Indication: Product used for unknown indication
     Route: 065
  9. LORAZEPAM [Suspect]
     Active Substance: LORAZEPAM
     Indication: Product used for unknown indication
     Route: 065
  10. NITROGLYCERIN [Suspect]
     Active Substance: NITROGLYCERIN
     Indication: Product used for unknown indication
     Route: 065
  11. PERINDOPRIL [Suspect]
     Active Substance: PERINDOPRIL
     Indication: Product used for unknown indication
     Route: 065
  12. PREDNISONE [Suspect]
     Active Substance: PREDNISONE
     Indication: Product used for unknown indication
     Route: 065
  13. PREGABALIN [Suspect]
     Active Substance: PREGABALIN
     Indication: Product used for unknown indication
     Route: 065
  14. ROSUVASTATIN CALCIUM [Suspect]
     Active Substance: ROSUVASTATIN CALCIUM
     Indication: Product used for unknown indication
     Route: 048
  15. ALBUTEROL SULFATE [Suspect]
     Active Substance: ALBUTEROL SULFATE
     Indication: Product used for unknown indication
     Route: 065
  16. SERTRALINE HYDROCHLORIDE [Suspect]
     Active Substance: SERTRALINE HYDROCHLORIDE
     Indication: Product used for unknown indication
     Route: 048
  17. SERTRALINE HYDROCHLORIDE [Suspect]
     Active Substance: SERTRALINE HYDROCHLORIDE
     Route: 048
  18. MONTELUKAST SODIUM [Suspect]
     Active Substance: MONTELUKAST SODIUM
     Indication: Product used for unknown indication
     Route: 048
  19. MONTELUKAST SODIUM [Suspect]
     Active Substance: MONTELUKAST SODIUM
     Route: 048
  20. TIOTROPIUM BROMIDE [Suspect]
     Active Substance: TIOTROPIUM BROMIDE
     Indication: Product used for unknown indication
     Route: 048
  21. TIOTROPIUM BROMIDE [Suspect]
     Active Substance: TIOTROPIUM BROMIDE
     Route: 048
  22. SPIRONOLACTONE [Suspect]
     Active Substance: SPIRONOLACTONE
     Indication: Product used for unknown indication
     Route: 048
  23. ALLOPURINOL [Suspect]
     Active Substance: ALLOPURINOL
     Indication: Product used for unknown indication
     Route: 065
  24. PANTOPRAZOLE MAGNESIUM [Suspect]
     Active Substance: PANTOPRAZOLE MAGNESIUM
     Indication: Product used for unknown indication
     Route: 065

REACTIONS (8)
  - Asthma [Unknown]
  - Full blood count abnormal [Unknown]
  - Chronic obstructive pulmonary disease [Unknown]
  - Cough [Unknown]
  - Middle insomnia [Unknown]
  - Wheezing [Unknown]
  - Eosinophilia [Unknown]
  - Productive cough [Unknown]
